FAERS Safety Report 5387535-2 (Version None)
Quarter: 2007Q3

REPORT INFORMATION
  Report Type: 
  Country: None (occurrence: None)
  Receive Date: 20070711
  Receipt Date: 20070711
  Transmission Date: 20080115
  Serious: Yes (Other)
  Sender: FDA-Public Use
  Company Number: None

PATIENT
  Age: 54 Year
  Sex: Male
  Weight: 78.9 kg

DRUGS (1)
  1. HYDROCHLOROTHIAZIDE [Suspect]
     Indication: HYPERTENSION
     Dosage: 12.5MG, 12.5MGQD, ORAL
     Route: 048
     Dates: start: 20061027, end: 20070521

REACTIONS (2)
  - PHOTOSENSITIVITY REACTION [None]
  - RASH [None]
